FAERS Safety Report 7380174-3 (Version None)
Quarter: 2011Q1

REPORT INFORMATION
  Report Type: 
  Country: None (occurrence: None)
  Receive Date: 20110329
  Receipt Date: 20101008
  Transmission Date: 20110831
  Serious: No
  Sender: FDA-Public Use
  Company Number: US-MYLANLABS-2010S1018743

PATIENT
  Age: 62 Year
  Sex: Male

DRUGS (1)
  1. ESTRADIOL [Suspect]

REACTIONS (3)
  - GROIN PAIN [None]
  - EJACULATION FAILURE [None]
  - ACCIDENTAL EXPOSURE [None]
